FAERS Safety Report 22752709 (Version 4)
Quarter: 2023Q4

REPORT INFORMATION
  Report Type: Report from Study
  Country: US (occurrence: US)
  Receive Date: 20230726
  Receipt Date: 20231114
  Transmission Date: 20240110
  Serious: Yes (Death, Hospitalization, Other)
  Sender: FDA-Public Use
  Company Number: US-GILEAD-2023-0636458

PATIENT
  Sex: Male

DRUGS (2)
  1. AZTREONAM LYSINE [Suspect]
     Active Substance: AZTREONAM LYSINE
     Indication: Bronchiectasis
     Dosage: 75MG THREE TIMES A DAY. ALTERNATE EVERY OTHER 28 DAYS
     Route: 055
  2. AZTREONAM LYSINE [Suspect]
     Active Substance: AZTREONAM LYSINE
     Indication: Bacterial infection

REACTIONS (3)
  - Death [Fatal]
  - Infection [Unknown]
  - Off label use [Unknown]
